FAERS Safety Report 6027550-9 (Version None)
Quarter: 2009Q1

REPORT INFORMATION
  Report Type: 
  Country: None (occurrence: None)
  Receive Date: 20090105
  Receipt Date: 20081226
  Transmission Date: 20090719
  Serious: Yes (Death)
  Sender: FDA-Public Use
  Company Number: US-ELI_LILLY_AND_COMPANY-US200812000872

PATIENT
  Age: 42 Year
  Sex: Male

DRUGS (8)
  1. CYMBALTA [Suspect]
     Indication: BIPOLAR I DISORDER
     Dosage: 30 MG, EACH MORNING
     Dates: start: 20081118
  2. OXYCONTIN [Concomitant]
     Indication: ACCIDENT AT WORK
  3. CHOLESTEROL [Concomitant]
  4. SEROQUEL [Concomitant]
     Dosage: 200 MG, EACH EVENING
     Dates: start: 20081118
  5. XANAX [Concomitant]
     Dosage: 1 MG, 2/D
     Dates: start: 20081118
  6. VASOTEC [Concomitant]
  7. NORVASC [Concomitant]
  8. TOPROL-XL [Concomitant]

REACTIONS (1)
  - DEATH [None]
